FAERS Safety Report 9220983 (Version 1)
Quarter: 2013Q2

REPORT INFORMATION
  Report Type: Spontaneous
  Country: JP (occurrence: JP)
  Receive Date: 20130409
  Receipt Date: 20130409
  Transmission Date: 20140414
  Serious: Yes (Other)
  Sender: FDA-Public Use
  Company Number: PHHY2013JP033038

PATIENT
  Sex: 0

DRUGS (3)
  1. CICLOSPORIN [Suspect]
     Indication: RENAL FAILURE CHRONIC
  2. PREDNISOLONE [Suspect]
     Indication: APLASIA PURE RED CELL
     Dosage: 1 MG/KG, UNK
  3. PREDNISOLONE [Suspect]
     Dosage: 0.2 MG/KG, UNK

REACTIONS (4)
  - Blood creatinine increased [Recovering/Resolving]
  - Cardiac failure chronic [Unknown]
  - Concomitant disease aggravated [Unknown]
  - Drug intolerance [Unknown]
